FAERS Safety Report 16713498 (Version 1)
Quarter: 2019Q3

REPORT INFORMATION
  Report Type: Spontaneous
  Country: US (occurrence: US)
  Receive Date: 20190819
  Receipt Date: 20190819
  Transmission Date: 20191004
  Serious: Yes (Hospitalization)
  Sender: FDA-Public Use
  Company Number: US-009507513-1908USA004938

PATIENT
  Age: 28 Year
  Sex: Female
  Weight: 62.6 kg

DRUGS (6)
  1. NEXPLANON [Suspect]
     Active Substance: ETONOGESTREL
     Dosage: UNK
     Dates: start: 2016
  2. HYDROXYZINE [Concomitant]
     Active Substance: HYDROXYZINE HYDROCHLORIDE
  3. LEXAPRO [Concomitant]
     Active Substance: ESCITALOPRAM OXALATE
  4. ABILIFY [Concomitant]
     Active Substance: ARIPIPRAZOLE
  5. NEXPLANON [Suspect]
     Active Substance: ETONOGESTREL
     Dosage: 1 ROD, EVERY 3 YEARS
     Route: 059
     Dates: start: 20190318
  6. CHLORPROMAZINE. [Concomitant]
     Active Substance: CHLORPROMAZINE

REACTIONS (1)
  - Jaundice [Recovering/Resolving]

NARRATIVE: CASE EVENT DATE: 20190801
